FAERS Safety Report 5487782-5 (Version None)
Quarter: 2007Q3

REPORT INFORMATION
  Report Type: 
  Country: None (occurrence: None)
  Receive Date: 20070925
  Receipt Date: 20070807
  Transmission Date: 20080115
  Serious: No
  Sender: FDA-Public Use
  Company Number: 2007US001855

PATIENT
  Age: 67 Year
  Sex: Female

DRUGS (4)
  1. VESICARE [Suspect]
     Indication: INCONTINENCE
     Dosage: 5 MG, UID/QD, ORAL
     Route: 048
     Dates: start: 20070802
  2. COUMADIN [Concomitant]
  3. VERAPAMIL (VERAPAMIL HYDROCHLORIDE) [Concomitant]
  4. MULTIVITAMIN [Concomitant]

REACTIONS (2)
  - BLOOD CREATININE ABNORMAL [None]
  - DRY MOUTH [None]
